FAERS Safety Report 6509793-0 (Version None)
Quarter: 2009Q4

REPORT INFORMATION
  Report Type: 
  Country: None (occurrence: None)
  Receive Date: 20091222
  Receipt Date: 20091211
  Transmission Date: 20100525
  Serious: Yes (Life-Threatening, Hospitalization)
  Sender: FDA-Public Use
  Company Number: FR-BAXTER-2009BH015689

PATIENT
  Age: 88 Year
  Sex: Male
  Weight: 84 kg

DRUGS (10)
  1. GAMMAGARD LIQUID [Suspect]
     Indication: HYPOGAMMAGLOBULINAEMIA
     Route: 042
     Dates: start: 20091002, end: 20091009
  2. GAMMAGARD LIQUID [Suspect]
     Indication: CHRONIC LYMPHOCYTIC LEUKAEMIA
     Route: 042
     Dates: start: 20091002, end: 20091009
  3. GAMMAGARD LIQUID [Suspect]
     Route: 042
     Dates: start: 20091126, end: 20091126
  4. GAMMAGARD LIQUID [Suspect]
     Route: 042
     Dates: start: 20091126, end: 20091126
  5. ANTIBIOTICS [Concomitant]
     Indication: PNEUMONIA
  6. LODALES [Concomitant]
     Indication: DYSLIPIDAEMIA
     Route: 048
  7. CORDARONE [Concomitant]
     Indication: ARRHYTHMIA SUPRAVENTRICULAR
     Route: 048
  8. PREVISCAN [Concomitant]
     Indication: ARRHYTHMIA SUPRAVENTRICULAR
     Route: 048
  9. PARACETAMOL [Concomitant]
     Route: 048
  10. TRIATEC [Concomitant]
     Indication: MYOCARDIAL INFARCTION
     Route: 048

REACTIONS (5)
  - BLOOD PRESSURE INCREASED [None]
  - CHILLS [None]
  - LIVEDO RETICULARIS [None]
  - PYREXIA [None]
  - TACHYCARDIA [None]
